FAERS Safety Report 14675329 (Version 1)
Quarter: 2018Q1

REPORT INFORMATION
  Report Type: Spontaneous
  Country: IT (occurrence: IT)
  Receive Date: 20180323
  Receipt Date: 20180323
  Transmission Date: 20180509
  Serious: Yes (Hospitalization)
  Sender: FDA-Public Use
  Company Number: IT-PFIZER INC-2018117797

PATIENT
  Age: 25 Year
  Sex: Male
  Weight: 59 kg

DRUGS (9)
  1. CYCLOPHOSPHAMIDE. [Concomitant]
     Active Substance: CYCLOPHOSPHAMIDE
     Indication: ACUTE LYMPHOCYTIC LEUKAEMIA
     Dosage: 600 MG/M2, DAILY
     Route: 042
     Dates: start: 20161028, end: 20161030
  2. DOXORUBICIN HCL [Concomitant]
     Active Substance: DOXORUBICIN HYDROCHLORIDE
     Indication: ACUTE LYMPHOCYTIC LEUKAEMIA
     Dosage: 50 MG/M2, TOTAL
     Route: 042
     Dates: start: 20161031, end: 20161031
  3. ICLUSIG [Concomitant]
     Active Substance: PONATINIB
     Indication: ACUTE LYMPHOCYTIC LEUKAEMIA
     Dosage: 45 MG, DAILY
     Route: 048
     Dates: start: 20161029, end: 20170106
  4. CYTARABINE. [Suspect]
     Active Substance: CYTARABINE
     Indication: ACUTE LYMPHOCYTIC LEUKAEMIA
     Dosage: 6000 MG/M2, DAILY
     Route: 042
     Dates: start: 20161118, end: 20161119
  5. VINCRISTINE SULFATE. [Concomitant]
     Active Substance: VINCRISTINE SULFATE
     Indication: ACUTE LYMPHOCYTIC LEUKAEMIA
     Dosage: 4 MG, TOTAL
     Route: 040
     Dates: start: 20161031, end: 20161107
  6. DEXAMETHASONE SODIUM PHOSPHATE. [Concomitant]
     Active Substance: DEXAMETHASONE SODIUM PHOSPHATE
     Indication: ACUTE LYMPHOCYTIC LEUKAEMIA
     Dosage: 280 MG, TOTAL
     Route: 042
     Dates: start: 20161028, end: 20161110
  7. MABTHERA [Concomitant]
     Active Substance: RITUXIMAB
     Indication: ACUTE LYMPHOCYTIC LEUKAEMIA
     Dosage: 375 MG/M2, CYCLIC
     Route: 042
     Dates: start: 20161103, end: 20161120
  8. BLINATUMOMAB [Concomitant]
     Active Substance: BLINATUMOMAB
     Indication: ACUTE LYMPHOCYTIC LEUKAEMIA
     Dosage: 28 UG, DAILY
     Route: 042
     Dates: start: 20161014, end: 20161025
  9. METHOTREXATE SODIUM. [Suspect]
     Active Substance: METHOTREXATE SODIUM
     Indication: ACUTE LYMPHOCYTIC LEUKAEMIA
     Dosage: 1000 MG/M2, TOTAL
     Route: 042
     Dates: start: 20161117, end: 20161117

REACTIONS (2)
  - Osteomyelitis bacterial [Recovered/Resolved]
  - Klebsiella infection [Recovered/Resolved]

NARRATIVE: CASE EVENT DATE: 20161130
